FAERS Safety Report 5517858-5 (Version None)
Quarter: 2007Q4

REPORT INFORMATION
  Report Type: 
  Country: None (occurrence: None)
  Receive Date: 20071113
  Receipt Date: 20071105
  Transmission Date: 20080405
  Serious: Yes (Death, Hospitalization, Other)
  Sender: FDA-Public Use
  Company Number: 163-21880-06090216

PATIENT
  Age: 59 Year
  Sex: Male

DRUGS (9)
  1. REVLIMID [Suspect]
     Indication: MULTIPLE MYELOMA
     Dosage: 20 MG, DAILY FOR 20 DAYS
     Dates: start: 20060801, end: 20061001
  2. TIAZAC [Concomitant]
  3. CARDIZEM [Concomitant]
  4. RHYTHMOL (ANTIARRHYTHMICS, CLASS I AND III) [Concomitant]
  5. CENTRUM (CENTRUM) [Concomitant]
  6. DEXAMETHASONE TAB [Concomitant]
  7. VELCADE [Concomitant]
  8. PEG-INTRON [Concomitant]
  9. CYTOXAN [Concomitant]

REACTIONS (5)
  - ANAEMIA [None]
  - DEHYDRATION [None]
  - INFECTION [None]
  - MYELODYSPLASTIC SYNDROME [None]
  - THROMBOCYTOPENIA [None]
